FAERS Safety Report 8361138-X (Version None)
Quarter: 2012Q2

REPORT INFORMATION
  Report Type: 
  Country: None (occurrence: None)
  Receive Date: 20120515
  Receipt Date: 20120430
  Transmission Date: 20120825
  Serious: Yes (Other)
  Sender: FDA-Public Use
  Company Number: ES-WATSON-2012-07646

PATIENT
  Age: 53 Year
  Sex: Female

DRUGS (1)
  1. TOPIRAMATE [Suspect]
     Indication: MIGRAINE
     Dosage: 25 MG, BID
     Route: 065

REACTIONS (5)
  - MYDRIASIS [None]
  - ANGLE CLOSURE GLAUCOMA [None]
  - CORNEAL OEDEMA [None]
  - MYOPIA [None]
  - CHOROIDAL EFFUSION [None]
